FAERS Safety Report 4574046-7 (Version None)
Quarter: 2005Q1

REPORT INFORMATION
  Report Type: 
  Country: None (occurrence: None)
  Receive Date: 20050204
  Receipt Date: 20050124
  Transmission Date: 20050727
  Serious: Yes (Death)
  Sender: FDA-Public Use
  Company Number: 2005020307

PATIENT
  Sex: Male

DRUGS (15)
  1. LINEZOLID TABLET (LINEZOLID) [Suspect]
     Indication: ILL-DEFINED DISORDER
     Dates: start: 20040101, end: 20040101
  2. OXYCODONE (OXYCODONE) [Suspect]
     Indication: ILL-DEFINED DISORDER
     Dates: end: 20040101
  3. CEPHALEXIN MONOHYDRATE [Concomitant]
  4. METOPROLOL TARTRATE [Concomitant]
  5. SUCRALFATE [Concomitant]
  6. PROMETHAZINE HYDROCHLORIDE TAB [Concomitant]
  7. FUROSEMIDE (FUROSEMIDE) [Concomitant]
  8. SPIRONOLACTONE [Concomitant]
  9. METOCLOPRAMIDE [Concomitant]
  10. CARVEDILOL (CERVEDILOL) [Concomitant]
  11. LANSOPRAZOLE [Concomitant]
  12. DOCUSATE SODIUM (DOCUSATE SODIUM) [Concomitant]
  13. DIGOXIN [Concomitant]
  14. RAMIPRIL [Concomitant]
  15. AMLODIPINE BESYLATE [Concomitant]

REACTIONS (1)
  - OVERDOSE [None]
